FAERS Safety Report 6100178-8 (Version None)
Quarter: 2009Q1

REPORT INFORMATION
  Report Type: 
  Country: None (occurrence: None)
  Receive Date: 20090303
  Receipt Date: 20090224
  Transmission Date: 20090719
  Serious: Yes (Other)
  Sender: FDA-Public Use
  Company Number: US-JNJFOC-20090104443

PATIENT
  Sex: Male

DRUGS (2)
  1. IBUPROFEN TABLETS [Suspect]
  2. IBUPROFEN TABLETS [Suspect]
     Indication: ARTHROPATHY

REACTIONS (1)
  - GASTROINTESTINAL ULCER [None]
